FAERS Safety Report 23976826 (Version 3)
Quarter: 2024Q3

REPORT INFORMATION
  Report Type: Spontaneous
  Country: US (occurrence: US)
  Receive Date: 20240614
  Receipt Date: 20240819
  Transmission Date: 20241017
  Serious: No
  Sender: CALLIDITAS THERAPEUTICS
  Company Number: US-Calliditas-2024CAL00948

PATIENT
  Age: 74 Year
  Sex: Male
  Weight: 99.5 kg

DRUGS (6)
  1. TARPEYO [Suspect]
     Active Substance: BUDESONIDE
     Indication: IgA nephropathy
     Route: 048
     Dates: start: 20240507
  2. LOSARTAN [Suspect]
     Active Substance: LOSARTAN\LOSARTAN POTASSIUM
  3. BUPROPION [Concomitant]
     Active Substance: BUPROPION
  4. ALLOPURINOL [Concomitant]
     Active Substance: ALLOPURINOL
  5. LEVOTHYROXINE [Concomitant]
     Active Substance: LEVOTHYROXINE\LEVOTHYROXINE SODIUM
  6. ALFUZOSIN [Concomitant]
     Active Substance: ALFUZOSIN

REACTIONS (6)
  - Fatigue [Not Recovered/Not Resolved]
  - Defaecation urgency [Recovered/Resolved]
  - Palpitations [Not Recovered/Not Resolved]
  - Asthenia [Not Recovered/Not Resolved]
  - Dizziness [Recovered/Resolved]
  - Dyspnoea [Recovered/Resolved]

NARRATIVE: CASE EVENT DATE: 20240604
